FAERS Safety Report 7198877-2 (Version None)
Quarter: 2010Q4

REPORT INFORMATION
  Report Type: 
  Country: None (occurrence: None)
  Receive Date: 20101227
  Receipt Date: 20101221
  Transmission Date: 20110411
  Serious: Yes (Hospitalization)
  Sender: FDA-Public Use
  Company Number: US-ABBOTT-10P-163-0690927-00

PATIENT
  Sex: Male

DRUGS (7)
  1. HUMIRA [Suspect]
     Indication: PSORIASIS
     Route: 058
     Dates: start: 20070901
  2. COMMERCIAL HUMIRA [Concomitant]
     Indication: PSORIASIS
     Dates: start: 20091012
  3. TENORMIN [Concomitant]
     Indication: HYPERTENSION
     Dates: start: 19890101
  4. ANSAID [Concomitant]
     Indication: JOINT STIFFNESS
     Dates: start: 19890101
  5. ANSAID [Concomitant]
     Indication: PAIN
  6. METHOTREXATE [Concomitant]
     Indication: PSORIASIS
     Dates: start: 20070111
  7. CORTICOSTEROIDS, DERMATOLOGICAL PREPARATIONS [Concomitant]
     Indication: PSORIASIS
     Dates: start: 19710101

REACTIONS (2)
  - ANAEMIA [None]
  - CHEST PAIN [None]
